FAERS Safety Report 17853477 (Version 4)
Quarter: 2020Q3

REPORT INFORMATION
  Report Type: Spontaneous
  Country: JP (occurrence: JP)
  Receive Date: 20200603
  Receipt Date: 20200804
  Transmission Date: 20201103
  Serious: No
  Sender: FDA-Public Use
  Company Number: JP-SA-2020SA139649

PATIENT

DRUGS (3)
  1. BILANOA [Concomitant]
     Active Substance: BILASTINE
     Indication: PRURITUS
     Dosage: UNK UNK, QD
     Route: 065
     Dates: start: 20200401
  2. DUPIXENT [Suspect]
     Active Substance: DUPILUMAB
     Indication: DERMATITIS ATOPIC
     Dosage: 300 MG, QOW
     Route: 058
     Dates: start: 20200529
  3. ANTEBATE [Concomitant]
     Active Substance: BETAMETHASONE DIPROPIONATE
     Indication: FOLLICULITIS
     Dosage: DOSING FREQUENCY: TWICE
     Route: 061
     Dates: start: 20200401

REACTIONS (2)
  - Eyelid folliculitis [Recovered/Resolved]
  - Hordeolum [Recovered/Resolved]

NARRATIVE: CASE EVENT DATE: 20200530
